FAERS Safety Report 9027956 (Version 1)
Quarter: 2013Q1

REPORT INFORMATION
  Report Type: Report from Study
  Country: US (occurrence: US)
  Receive Date: 20130123
  Receipt Date: 20130123
  Transmission Date: 20140127
  Serious: Yes (Death, Other)
  Sender: FDA-Public Use
  Company Number: US-ROCHE-1102231

PATIENT
  Sex: Male

DRUGS (1)
  1. VEMURAFENIB [Suspect]
     Indication: PRODUCT USED FOR UNKNOWN INDICATION
     Route: 065

REACTIONS (8)
  - Weight decreased [Unknown]
  - Vision blurred [Unknown]
  - Muscle twitching [Unknown]
  - Hyperkeratosis [Unknown]
  - Alopecia [Unknown]
  - Myalgia [Unknown]
  - Decreased appetite [Unknown]
  - Death [Fatal]
